FAERS Safety Report 4638430-5 (Version None)
Quarter: 2005Q2

REPORT INFORMATION
  Report Type: 
  Country: None (occurrence: None)
  Receive Date: 20050415
  Receipt Date: 20050103
  Transmission Date: 20051028
  Serious: Yes (Other)
  Sender: FDA-Public Use
  Company Number: 2004-0007837

PATIENT
  Age: 17 Year
  Sex: Male
  Weight: 60 kg

DRUGS (8)
  1. HEPSERA [Suspect]
     Indication: HEPATITIS B
     Dosage: 10 MG, 1 IN 1 D, ORAL
     Route: 048
     Dates: start: 20040726, end: 20041007
  2. ROVALCYTE (VALGANICICLOVIR) [Suspect]
     Indication: ANTIVIRAL PROPHYLAXIS
     Dosage: 900 MG, 1 IN 1 D, ORAL
     Route: 048
     Dates: start: 20040726, end: 20041007
  3. ROVALCYTE (VALGANICICLOVIR) [Suspect]
     Indication: RENAL TRANSPLANT
     Dosage: 900 MG, 1 IN 1 D, ORAL
     Route: 048
     Dates: start: 20040726, end: 20041007
  4. NEORAL [Concomitant]
  5. CELLCEPT [Concomitant]
  6. SOLUPRED (PREDNISOLONE SODIUM SULFOBENZOATE0 [Concomitant]
  7. OMEPRAZOLE [Concomitant]
  8. BACTRIN (BACTRIM) [Concomitant]

REACTIONS (1)
  - RHABDOMYOLYSIS [None]
